FAERS Safety Report 5140116-8 (Version None)
Quarter: 2006Q4

REPORT INFORMATION
  Report Type: 
  Country: None (occurrence: None)
  Receive Date: 20061031
  Receipt Date: 20061020
  Transmission Date: 20070319
  Serious: Yes (Hospitalization)
  Sender: FDA-Public Use
  Company Number: FR-AVENTIS-200613707FR

PATIENT

DRUGS (1)
  1. KETEK [Suspect]
     Dates: start: 20060101, end: 20060101

REACTIONS (1)
  - TACHYCARDIA [None]
